FAERS Safety Report 6104974-2 (Version None)
Quarter: 2009Q1

REPORT INFORMATION
  Report Type: 
  Country: None (occurrence: None)
  Receive Date: 20090304
  Receipt Date: 20090304
  Transmission Date: 20090719
  Serious: No
  Sender: FDA-Public Use
  Company Number: None

PATIENT
  Age: 63 Year
  Sex: Female
  Weight: 99.9 kg

DRUGS (1)
  1. VARENICLINE [Suspect]
     Dosage: 0.5 MG BID PO
     Route: 048
     Dates: start: 20071002, end: 20071005

REACTIONS (2)
  - HEADACHE [None]
  - SYNCOPE [None]
